FAERS Safety Report 8725036 (Version 2)
Quarter: 2015Q2

REPORT INFORMATION
  Report Type: Report from Study
  Country: US (occurrence: US)
  Receive Date: 20120813
  Receipt Date: 20150625
  Transmission Date: 20150821
  Serious: Yes (Other)
  Sender: FDA-Public Use
  Company Number: US-ROCHE-1099754

PATIENT
  Age: 64 Year
  Sex: Male

DRUGS (16)
  1. LIDOCAINE. [Concomitant]
     Active Substance: LIDOCAINE
     Route: 040
  2. ASPIRIN. [Concomitant]
     Active Substance: ASPIRIN
     Route: 048
  3. HEPARIN [Concomitant]
     Active Substance: HEPARIN SODIUM
     Route: 042
  4. CARDIZEM [Concomitant]
     Active Substance: DILTIAZEM HYDROCHLORIDE
     Route: 065
  5. MORPHINE SULPHATE DRIP [Concomitant]
     Route: 042
  6. DILTIAZEM SR [Concomitant]
     Active Substance: DILTIAZEM HYDROCHLORIDE
     Route: 048
  7. INDERAL [Concomitant]
     Active Substance: PROPRANOLOL HYDROCHLORIDE
     Route: 042
  8. ACTIVASE [Suspect]
     Active Substance: ALTEPLASE
     Indication: MYOCARDIAL INFARCTION
     Route: 042
  9. HEPARIN [Concomitant]
     Active Substance: HEPARIN SODIUM
     Dosage: 10,000 UNITS, IN 500ML OF 5% DEXTROSE WATER
     Route: 042
  10. LIDOCAINE. [Concomitant]
     Active Substance: LIDOCAINE
     Route: 041
  11. LIDOCAINE. [Concomitant]
     Active Substance: LIDOCAINE
     Route: 040
  12. LIDOCAINE. [Concomitant]
     Active Substance: LIDOCAINE
     Dosage: PER MINUTES
     Route: 041
  13. HEPARIN [Concomitant]
     Active Substance: HEPARIN SODIUM
     Dosage: 500 UNITS
     Route: 042
  14. DILTIAZEM SR [Concomitant]
     Active Substance: DILTIAZEM HYDROCHLORIDE
     Route: 048
  15. HEPARIN [Concomitant]
     Active Substance: HEPARIN SODIUM
     Dosage: 1000 UNITS
     Route: 042
  16. OXYGEN. [Concomitant]
     Active Substance: OXYGEN
     Route: 045

REACTIONS (5)
  - Ventricular extrasystoles [Unknown]
  - Chest pain [Unknown]
  - Injection site oedema [Unknown]
  - Back pain [Unknown]
  - Hypotension [Unknown]
